FAERS Safety Report 25402890 (Version 2)
Quarter: 2025Q2

REPORT INFORMATION
  Report Type: Spontaneous
  Country: US (occurrence: US)
  Receive Date: 20250605
  Receipt Date: 20250618
  Transmission Date: 20250716
  Serious: Yes (Other)
  Sender: MERCK SHARP & DOHME LLC
  Company Number: US-009507513-2292982

PATIENT
  Age: 74 Year
  Sex: Female

DRUGS (5)
  1. BELSOMRA [Suspect]
     Active Substance: SUVOREXANT
     Indication: Insomnia
     Dosage: 10MG/ONCE TABLET DAILY AT BEDTIME
     Route: 048
     Dates: start: 20250527, end: 20250602
  2. pravastatin 10 [Concomitant]
     Route: 048
  3. omeprazole 20 [Concomitant]
     Route: 048
  4. LEXAPRO [Concomitant]
     Active Substance: ESCITALOPRAM OXALATE
  5. ESTRADIOL [Concomitant]
     Active Substance: ESTRADIOL
     Route: 067

REACTIONS (5)
  - Hallucination [Recovered/Resolved]
  - Somnolence [Recovered/Resolved]
  - Nightmare [Recovered/Resolved]
  - Drug effect less than expected [Recovered/Resolved]
  - Drug ineffective [Unknown]

NARRATIVE: CASE EVENT DATE: 20250527
